FAERS Safety Report 14312477 (Version 1)
Quarter: 2017Q4

REPORT INFORMATION
  Report Type: Spontaneous
  Country: US (occurrence: US)
  Receive Date: 20171220
  Receipt Date: 20171220
  Transmission Date: 20180321
  Serious: Yes (Hospitalization)
  Sender: FDA-Public Use
  Company Number: None

PATIENT
  Age: 67 Year
  Sex: Female

DRUGS (1)
  1. LACTULOSE. [Suspect]
     Active Substance: LACTULOSE
     Indication: CONSTIPATION
     Route: 048
     Dates: start: 20171106, end: 20171208

REACTIONS (4)
  - Constipation [None]
  - Pneumatosis intestinalis [None]
  - Pneumoperitoneum [None]
  - Abdominal distension [None]

NARRATIVE: CASE EVENT DATE: 20171207
